FAERS Safety Report 23533997 (Version 1)
Quarter: 2024Q1

REPORT INFORMATION
  Report Type: Spontaneous
  Country: CA (occurrence: CA)
  Receive Date: 20240216
  Receipt Date: 20240216
  Transmission Date: 20240410
  Serious: Yes (Other)
  Sender: FDA-Public Use
  Company Number: CA-FreseniusKabi-FK202402459

PATIENT
  Age: 23 Year
  Sex: Female
  Weight: 75 kg

DRUGS (5)
  1. HYDROMORPHONE [Suspect]
     Active Substance: HYDROMORPHONE
     Indication: Pain
     Dosage: FORM OF ADMIN.: NOT SPECIFIED
     Route: 042
  2. LORAZEPAM [Suspect]
     Active Substance: LORAZEPAM
     Indication: Seizure
     Dosage: FOA: NOT SPECIFIED
     Route: 042
  3. DOXYLAMINE SUCCINATE\PYRIDOXINE HYDROCHLORIDE [Concomitant]
     Active Substance: DOXYLAMINE SUCCINATE\PYRIDOXINE HYDROCHLORIDE
     Indication: Product used for unknown indication
  4. LEVETIRACETAM [Concomitant]
     Active Substance: LEVETIRACETAM
     Indication: Product used for unknown indication
     Dosage: ROA: UNKNOWN ?FOA: TABLETS
  5. OMEPRAZOLE [Concomitant]
     Active Substance: OMEPRAZOLE
     Indication: Product used for unknown indication
     Dosage: FOA: CAPSULE, DELAYED RELEASE

REACTIONS (6)
  - Abdominal pain lower [Recovered/Resolved]
  - Apnoea [Recovered/Resolved]
  - Drug interaction [Recovered/Resolved]
  - Oxygen saturation decreased [Recovered/Resolved]
  - Respiratory depression [Recovered/Resolved]
  - Seizure [Recovered/Resolved]
